FAERS Safety Report 9028596 (Version 4)
Quarter: 2013Q1

REPORT INFORMATION
  Report Type: Report from Study
  Country: DE (occurrence: DE)
  Receive Date: 20130124
  Receipt Date: 20130228
  Transmission Date: 20140127
  Serious: Yes (Hospitalization)
  Sender: FDA-Public Use
  Company Number: DE-GLAXOSMITHKLINE-B0861776A

PATIENT
  Age: 47 Year
  Sex: Female
  Weight: 105 kg

DRUGS (6)
  1. LAPATINIB [Suspect]
     Indication: BREAST CANCER
     Dosage: 750MG THREE TIMES PER DAY
     Route: 048
     Dates: start: 20121108
  2. MYOCET [Suspect]
     Indication: BREAST CANCER
     Dosage: 40MG WEEKLY
     Route: 042
     Dates: start: 20121108
  3. PACLITAXEL [Suspect]
     Indication: BREAST CANCER
     Dosage: 100MG WEEKLY
     Route: 042
     Dates: start: 20121108
  4. TRASTUZUMAB [Suspect]
     Indication: BREAST CANCER
     Dosage: 630MG WEEKLY
     Route: 042
     Dates: start: 20121220
  5. DEXAMETHASON [Concomitant]
     Dosage: 4MG PER DAY
     Dates: start: 20121108
  6. GRANISETRON [Concomitant]
     Dosage: 1MG PER DAY
     Dates: start: 20121108

REACTIONS (1)
  - Pyrexia [Recovered/Resolved]
